FAERS Safety Report 14731312 (Version 1)
Quarter: 2018Q2

REPORT INFORMATION
  Report Type: Report from Study
  Country: None (occurrence: IE)
  Receive Date: 20180407
  Receipt Date: 20180407
  Transmission Date: 20180711
  Serious: Yes (Other)
  Sender: FDA-Public Use
  Company Number: IE-ABBVIE-18K-229-2314668-00

PATIENT
  Sex: Female

DRUGS (1)
  1. HUMIRA [Suspect]
     Active Substance: ADALIMUMAB
     Indication: ANKYLOSING SPONDYLITIS
     Dosage: THERAPY START DATE: 2011 OR 2012
     Route: 058
     Dates: end: 201701

REACTIONS (3)
  - Auditory disorder [Unknown]
  - Paraesthesia [Recovered/Resolved]
  - Demyelination [Recovered/Resolved]
